FAERS Safety Report 25760606 (Version 1)
Quarter: 2025Q3

REPORT INFORMATION
  Report Type: Spontaneous
  Country: US (occurrence: None)
  Receive Date: 20250904
  Receipt Date: 20250904
  Transmission Date: 20251020
  Serious: Yes (Hospitalization)
  Sender: FDA-CTU
  Company Number: None

PATIENT
  Sex: Female

DRUGS (11)
  1. REBIF [Suspect]
     Active Substance: INTERFERON BETA-1A
     Indication: Multiple sclerosis
     Dosage: INJECT 1 SYRINGE UNDER THE SKIN THREE TIMES PER WEEK AT THE SAME TIMES ON THE SAME 3 DAYS AT  LEAST 48 HOURS APART?
     Route: 058
     Dates: start: 20230531
  2. ACETAMINOPHEN [Concomitant]
     Active Substance: ACETAMINOPHEN
  3. CALCIUM 500 [Concomitant]
  4. COENZYME Q10 [Concomitant]
     Active Substance: DIETARY SUPPLEMENT\UBIDECARENONE
  5. COREG [Concomitant]
     Active Substance: CARVEDILOL
  6. FLECAINIDE [Concomitant]
     Active Substance: FLECAINIDE
  7. LUTEIN [Concomitant]
     Active Substance: LUTEIN
  8. LYRICA [Concomitant]
     Active Substance: PREGABALIN
  9. METOPROLOL TARTRATE [Concomitant]
     Active Substance: METOPROLOL TARTRATE
  10. NIFEDIPINE [Concomitant]
     Active Substance: NIFEDIPINE
  11. OXYCODONE [Concomitant]
     Active Substance: OXYCODONE

REACTIONS (1)
  - Hospitalisation [None]
